FAERS Safety Report 9644915 (Version 1)
Quarter: 2013Q4

REPORT INFORMATION
  Report Type: Spontaneous
  Country: US (occurrence: US)
  Receive Date: 20131025
  Receipt Date: 20131025
  Transmission Date: 20140711
  Serious: No
  Sender: FDA-Public Use
  Company Number: US-PFIZER INC-2013303821

PATIENT
  Age: 55 Year
  Sex: Female
  Weight: 99.77 kg

DRUGS (3)
  1. XELJANZ [Suspect]
     Indication: RHEUMATOID ARTHRITIS
     Dosage: 5 MG, 2X/DAY
     Route: 048
     Dates: start: 201309, end: 201310
  2. PREDNISONE [Concomitant]
     Dosage: 5 MG, 1X/DAY
  3. COUMADIN [Concomitant]
     Dosage: 7.5 MG, 1X/DAY

REACTIONS (2)
  - Pain [Not Recovered/Not Resolved]
  - Herpes virus infection [Not Recovered/Not Resolved]
